FAERS Safety Report 9730091 (Version 3)
Quarter: 2013Q4

REPORT INFORMATION
  Report Type: Spontaneous
  Country: US (occurrence: US)
  Receive Date: 20131204
  Receipt Date: 20131231
  Transmission Date: 20140711
  Serious: Yes (Hospitalization, Other)
  Sender: FDA-Public Use
  Company Number: US-BAXTER-2013BAX048054

PATIENT
  Sex: Female

DRUGS (6)
  1. DIANEAL LOW CALCIUM [Suspect]
     Indication: RENAL FAILURE CHRONIC
     Route: 033
     Dates: start: 201210
  2. DIANEAL LOW CALCIUM [Suspect]
     Indication: RENAL FAILURE CHRONIC
     Route: 033
     Dates: start: 201210
  3. DIANEAL LOW CALCIUM [Suspect]
     Indication: RENAL FAILURE CHRONIC
     Route: 033
     Dates: start: 201210
  4. SODIUM BICARBONATE [Suspect]
     Indication: GASTRIC PH INCREASED
     Route: 048
     Dates: start: 201307, end: 201312
  5. LABETALOL [Concomitant]
     Indication: HYPERTENSION
     Route: 048
  6. CLONIDINE [Concomitant]
     Indication: HYPERTENSION
     Route: 062

REACTIONS (7)
  - Pneumonia [Recovering/Resolving]
  - Headache [Recovered/Resolved]
  - Cardiac failure congestive [Recovering/Resolving]
  - Pericardial effusion [Unknown]
  - Hypertension [Recovering/Resolving]
  - Pulmonary oedema [Unknown]
  - Gastric pH increased [Unknown]
